FAERS Safety Report 8369225-7 (Version None)
Quarter: 2012Q2

REPORT INFORMATION
  Report Type: 
  Country: None (occurrence: None)
  Receive Date: 20120518
  Receipt Date: 20120510
  Transmission Date: 20120825
  Serious: Yes (Death, Hospitalization, Other)
  Sender: FDA-Public Use
  Company Number: HU-ELI_LILLY_AND_COMPANY-HU201205004665

PATIENT
  Age: 80 Year
  Sex: Female

DRUGS (9)
  1. SPIRONOLACTONE [Concomitant]
  2. DIAPREL [Concomitant]
  3. TERIPARATIDE [Suspect]
     Dosage: UNK
     Route: 058
     Dates: start: 20111007, end: 20120401
  4. D3 [Concomitant]
  5. TRAMADOL HCL [Concomitant]
  6. DIGOXIN [Concomitant]
  7. NOACID [Concomitant]
  8. FERROGRAD FOLIC [Concomitant]
  9. FRONTIN [Concomitant]

REACTIONS (9)
  - ELECTROLYTE IMBALANCE [None]
  - INTESTINAL ISCHAEMIA [None]
  - GASTROINTESTINAL OEDEMA [None]
  - RENAL FAILURE [None]
  - CHOLELITHIASIS [None]
  - FAECES DISCOLOURED [None]
  - NAUSEA [None]
  - NEPHROLITHIASIS [None]
  - DEATH [None]
